FAERS Safety Report 20029426 (Version 1)
Quarter: 2021Q4

REPORT INFORMATION
  Report Type: Spontaneous
  Country: US (occurrence: US)
  Receive Date: 20211103
  Receipt Date: 20211103
  Transmission Date: 20220303
  Serious: Yes (Other)
  Sender: FDA-Public Use
  Company Number: US-CATALYST PHARMACEUTICALS, INC-2021CAT00449

PATIENT
  Age: 57 Year
  Sex: Female
  Weight: 68.039 kg

DRUGS (2)
  1. FIRDAPSE [Suspect]
     Active Substance: AMIFAMPRIDINE PHOSPHATE
     Indication: Myasthenic syndrome
     Dosage: 20 MG, 3 TO 4 TIMES PER DAY
     Route: 048
  2. FIRDAPSE [Suspect]
     Active Substance: AMIFAMPRIDINE PHOSPHATE
     Dosage: 20 MG, 3 TO 4 TIMES PER DAY
     Route: 048

REACTIONS (1)
  - Mycobacterium avium complex infection [Not Recovered/Not Resolved]

NARRATIVE: CASE EVENT DATE: 20210901
